FAERS Safety Report 10622159 (Version 1)
Quarter: 2014Q4

REPORT INFORMATION
  Report Type: Spontaneous
  Country: US (occurrence: None)
  Receive Date: 20141202
  Receipt Date: 20141202
  Transmission Date: 20150529
  Serious: Yes (Death, Hospitalization)
  Sender: FDA-Public Use
  Company Number: None

PATIENT
  Age: 62 Year
  Sex: Male
  Weight: 72.1 kg

DRUGS (2)
  1. PIPERACILLIN/TAZOBACTAM [Suspect]
     Active Substance: PIPERACILLIN SODIUM\TAZOBACTAM SODIUM
     Indication: PNEUMONIA
     Route: 042
     Dates: start: 20141014, end: 20141021
  2. AZITHROMYCIN [Suspect]
     Active Substance: AZITHROMYCIN ANHYDROUS
     Indication: PNEUMONIA
     Dates: start: 20141018, end: 20141021

REACTIONS (9)
  - Acute kidney injury [None]
  - Hepatic function abnormal [None]
  - Atrial fibrillation [None]
  - Metabolic acidosis [None]
  - Clostridium difficile sepsis [None]
  - Respiratory acidosis [None]
  - Clostridium difficile colitis [None]
  - Cardiac failure [None]
  - Septic shock [None]

NARRATIVE: CASE EVENT DATE: 20141021
